FAERS Safety Report 10387772 (Version 2)
Quarter: 2014Q3

REPORT INFORMATION
  Report Type: Report from Study
  Country: US (occurrence: US)
  Receive Date: 20140815
  Receipt Date: 20140815
  Transmission Date: 20150326
  Serious: Yes (Other)
  Sender: FDA-Public Use
  Company Number: US-CELGENEUS-163-50794-11061456

PATIENT

DRUGS (2)
  1. ENTINOSTAT [Suspect]
     Active Substance: ENTINOSTAT
     Indication: MYELODYSPLASTIC SYNDROME
     Route: 048
  2. VIDAZA [Suspect]
     Active Substance: AZACITIDINE
     Indication: MYELODYSPLASTIC SYNDROME
     Route: 058

REACTIONS (15)
  - Thrombocytopenia [Unknown]
  - Neutropenia [Unknown]
  - Myelodysplastic syndrome [Unknown]
  - Confusional state [Unknown]
  - Hyponatraemia [Unknown]
  - Febrile neutropenia [Unknown]
  - Fatigue [Unknown]
  - Anaemia [Unknown]
  - Nausea [Unknown]
  - No therapeutic response [Unknown]
  - Infection [Unknown]
  - Asthenia [Unknown]
  - Vomiting [Unknown]
  - Hypoalbuminaemia [Unknown]
  - Dizziness [Unknown]
